FAERS Safety Report 8535034-9 (Version None)
Quarter: 2012Q3

REPORT INFORMATION
  Report Type: 
  Country: None (occurrence: None)
  Receive Date: 20120724
  Receipt Date: 20120720
  Transmission Date: 20120928
  Serious: Yes (Hospitalization)
  Sender: FDA-Public Use
  Company Number: US-B.I. PHARMACEUTICALS,INC./RIDGEFIELD-2012-BP-16257BP

PATIENT
  Sex: Male

DRUGS (10)
  1. AVODART [Concomitant]
     Indication: PROSTATOMEGALY
     Dosage: 15 MG
  2. METOPROLOL SUCCINATE [Concomitant]
     Indication: HYPERTENSION
     Dosage: 50 MG
     Dates: end: 20120715
  3. SYMBICORT [Concomitant]
     Indication: CHRONIC OBSTRUCTIVE PULMONARY DISEASE
     Route: 055
     Dates: start: 20110101
  4. SPIRIVA [Suspect]
     Indication: CHRONIC OBSTRUCTIVE PULMONARY DISEASE
     Dosage: 18 MCG
     Route: 055
     Dates: start: 20110101
  5. LISINOPRIL [Concomitant]
     Indication: HYPERTENSION
     Dosage: 80 MG
     Dates: end: 20120715
  6. AMLODIPINE [Concomitant]
     Indication: HYPERTENSION
     Dosage: 10 MG
     Dates: end: 20120715
  7. COMBIVENT [Suspect]
     Indication: CHRONIC OBSTRUCTIVE PULMONARY DISEASE
     Route: 055
     Dates: start: 20120601
  8. ACIPHEX [Concomitant]
     Indication: ACID BASE BALANCE ABNORMAL
     Route: 048
     Dates: start: 20100101
  9. SPIRIVA [Suspect]
     Route: 048
     Dates: start: 20120720, end: 20120720
  10. PLAVIX [Concomitant]
     Indication: ANTICOAGULANT THERAPY
     Dosage: 75 MG
     Route: 048
     Dates: start: 20090101

REACTIONS (9)
  - PAIN [None]
  - FEELING ABNORMAL [None]
  - BLOOD PRESSURE FLUCTUATION [None]
  - INSOMNIA [None]
  - PROSTATOMEGALY [None]
  - INCORRECT ROUTE OF DRUG ADMINISTRATION [None]
  - ANXIETY [None]
  - CHRONIC OBSTRUCTIVE PULMONARY DISEASE [None]
  - HYPONATRAEMIA [None]
